FAERS Safety Report 8240311-5 (Version None)
Quarter: 2012Q1

REPORT INFORMATION
  Report Type: 
  Country: None (occurrence: None)
  Receive Date: 20120328
  Receipt Date: 20120320
  Transmission Date: 20120608
  Serious: Yes (Hospitalization, Other)
  Sender: FDA-Public Use
  Company Number: US-ELI_LILLY_AND_COMPANY-US201203006489

PATIENT
  Sex: Female

DRUGS (6)
  1. ROFLUMILAST [Concomitant]
  2. ANTIBIOTICS [Concomitant]
  3. FORTEO [Suspect]
     Indication: BONE DISORDER
     Dosage: 20 UG, QD
     Route: 065
     Dates: start: 20111109
  4. FORTEO [Suspect]
     Dosage: 20 UG, QD
     Route: 065
  5. ASPIRIN [Concomitant]
     Dosage: 81 MG, QD
  6. SPIRIVA [Concomitant]

REACTIONS (5)
  - MUSCULOSKELETAL STIFFNESS [None]
  - CHRONIC OBSTRUCTIVE PULMONARY DISEASE [None]
  - MALAISE [None]
  - DRUG INEFFECTIVE [None]
  - DYSPNOEA [None]
